FAERS Safety Report 19032333 (Version 3)
Quarter: 2022Q1

REPORT INFORMATION
  Report Type: Spontaneous
  Country: US (occurrence: None)
  Receive Date: 20210319
  Receipt Date: 20220208
  Transmission Date: 20220423
  Serious: Yes (Hospitalization, Other)
  Sender: FDA-Public Use
  Company Number: 2021A140896

PATIENT
  Age: 48 Year
  Sex: Male
  Weight: 147.7 kg

DRUGS (56)
  1. NEXIUM [Suspect]
     Active Substance: ESOMEPRAZOLE MAGNESIUM
     Indication: Gastrooesophageal reflux disease
     Route: 048
     Dates: start: 2008
  2. NEXIUM [Suspect]
     Active Substance: ESOMEPRAZOLE MAGNESIUM
     Indication: Gastrooesophageal reflux disease
     Route: 048
     Dates: start: 20080527, end: 20150224
  3. NEXIUM [Suspect]
     Active Substance: ESOMEPRAZOLE MAGNESIUM
     Indication: Gastrooesophageal reflux disease
     Dosage: GENERIC
     Route: 065
     Dates: start: 20150327, end: 201906
  4. NEXIUM [Suspect]
     Active Substance: ESOMEPRAZOLE MAGNESIUM
     Indication: Gastrooesophageal reflux disease
     Route: 048
     Dates: start: 20080527
  5. PREVACID [Suspect]
     Active Substance: LANSOPRAZOLE
     Route: 065
  6. PANTOPRAZOLE [Suspect]
     Active Substance: PANTOPRAZOLE
     Indication: Gastrooesophageal reflux disease
     Dosage: 400 MLS IV/40 MG BAG
     Route: 065
     Dates: start: 20180416, end: 20180417
  7. AZITHROMYCIN [Concomitant]
     Active Substance: AZITHROMYCIN
     Dates: start: 20080125, end: 20190308
  8. FUROSEMIDE [Concomitant]
     Active Substance: FUROSEMIDE
     Dates: start: 20080125, end: 20190218
  9. ALLOPURINOL [Concomitant]
     Active Substance: ALLOPURINOL
     Dates: start: 20080527, end: 20190614
  10. CIPROFLOXACIN HYDROCHLORIDE [Concomitant]
     Active Substance: CIPROFLOXACIN HYDROCHLORIDE
     Dates: start: 20080729, end: 20181229
  11. LEVAQUIN [Concomitant]
     Active Substance: LEVOFLOXACIN
     Dates: start: 20090528
  12. DICLOFENAC [Concomitant]
     Active Substance: DICLOFENAC
     Dates: start: 20090529, end: 20190614
  13. CEPHALEXIN [Concomitant]
     Active Substance: CEPHALEXIN
     Dates: start: 20091029
  14. LOSARTAN [Concomitant]
     Active Substance: LOSARTAN
     Dates: start: 20100513, end: 20180411
  15. TRAMADOL [Concomitant]
     Active Substance: TRAMADOL
     Dates: start: 20090810, end: 20190618
  16. ATORVASTATIN [Concomitant]
     Active Substance: ATORVASTATIN
  17. VITAMIN E [Concomitant]
     Active Substance: .ALPHA.-TOCOPHEROL
     Indication: Nutritional supplementation
  18. VITAMIN C [Concomitant]
     Active Substance: ASCORBIC ACID
     Indication: Nutritional supplementation
  19. PREDNISONE [Concomitant]
     Active Substance: PREDNISONE
  20. POTASSIUM CHLORIDE [Concomitant]
     Active Substance: POTASSIUM CHLORIDE
  21. COZAAR [Concomitant]
     Active Substance: LOSARTAN POTASSIUM
  22. PROAIR HFA [Concomitant]
     Active Substance: ALBUTEROL SULFATE
  23. DICLOFENAC SODIUM [Concomitant]
     Active Substance: DICLOFENAC SODIUM
  24. FERROUS SULFATE [Concomitant]
     Active Substance: FERROUS SULFATE
  25. METOPROLOL TARTRAT [Concomitant]
  26. CLOTRIMAZOLE BETAM [Concomitant]
  27. CHLORTHALIDONE [Concomitant]
     Active Substance: CHLORTHALIDONE
  28. LOSARTAN [Concomitant]
     Active Substance: LOSARTAN
  29. CIALIS [Concomitant]
     Active Substance: TADALAFIL
  30. ENOXAPARIN [Concomitant]
     Active Substance: ENOXAPARIN
  31. ACETAMINOPHEN\HYDROCODONE BITARTRATE [Concomitant]
     Active Substance: ACETAMINOPHEN\HYDROCODONE BITARTRATE
  32. MIDODRINE HYDROCHLORIDE [Concomitant]
     Active Substance: MIDODRINE HYDROCHLORIDE
  33. TRAMADOL HCL [Concomitant]
     Active Substance: TRAMADOL HYDROCHLORIDE
  34. SEVELAMER CARBONAT [Concomitant]
  35. METOCLOPRAMIDE [Concomitant]
     Active Substance: METOCLOPRAMIDE
  36. GABAPENTIN [Concomitant]
     Active Substance: GABAPENTIN
  37. HYDROXYZINE HYDROCHLORIDE [Concomitant]
     Active Substance: HYDROXYZINE HYDROCHLORIDE
  38. NYSTATIN [Concomitant]
     Active Substance: NYSTATIN
  39. NEOMYCIN POLYMYXIN [Concomitant]
  40. ONDANSETRON HCL [Concomitant]
     Active Substance: ONDANSETRON HYDROCHLORIDE
  41. PRASUGREL [Concomitant]
     Active Substance: PRASUGREL
  42. CARTIA XT [Concomitant]
     Active Substance: DILTIAZEM HYDROCHLORIDE
  43. DILTIAZEM [Concomitant]
     Active Substance: DILTIAZEM
  44. LOSARTAN POTASSIUM [Concomitant]
     Active Substance: LOSARTAN POTASSIUM
  45. ZAROXOLYN [Concomitant]
     Active Substance: METOLAZONE
  46. LIDOCAINE [Concomitant]
     Active Substance: LIDOCAINE
  47. ERGOCALCIFEROL [Concomitant]
     Active Substance: ERGOCALCIFEROL
  48. VENTOLIN HFA [Concomitant]
     Active Substance: ALBUTEROL SULFATE
  49. REGLAN [Concomitant]
     Active Substance: METOCLOPRAMIDE HYDROCHLORIDE
  50. FIBER [Concomitant]
     Active Substance: PSYLLIUM HUSK
  51. SENSIPAR [Concomitant]
     Active Substance: CINACALCET HYDROCHLORIDE
  52. FOLIC ACID [Concomitant]
     Active Substance: FOLIC ACID
  53. CARAFATE [Concomitant]
     Active Substance: SUCRALFATE
     Dates: start: 20080125, end: 20190218
  54. HYDROCORTISONE ACETATE [Concomitant]
     Active Substance: HYDROCORTISONE ACETATE
     Dates: start: 20080125, end: 20190218
  55. ASPIRIN [Concomitant]
     Active Substance: ASPIRIN
     Dates: start: 20090529, end: 20190614
  56. ASPIRIN [Concomitant]
     Active Substance: ASPIRIN
     Dates: start: 20090529, end: 20190614

REACTIONS (7)
  - Acute kidney injury [Not Recovered/Not Resolved]
  - Chronic kidney disease [Not Recovered/Not Resolved]
  - End stage renal disease [Not Recovered/Not Resolved]
  - Renal failure [Unknown]
  - Nephrogenic anaemia [Unknown]
  - Hyperparathyroidism secondary [Unknown]
  - Rebound acid hypersecretion [Unknown]

NARRATIVE: CASE EVENT DATE: 20180425
